FAERS Safety Report 6239943-5 (Version None)
Quarter: 2009Q2

REPORT INFORMATION
  Report Type: 
  Country: None (occurrence: None)
  Receive Date: 20090618
  Receipt Date: 20090618
  Transmission Date: 20091009
  Serious: Yes (Hospitalization)
  Sender: FDA-Public Use
  Company Number: None

PATIENT
  Age: 26 Year
  Sex: Female
  Weight: 106.5953 kg

DRUGS (1)
  1. CYMBALTA [Suspect]
     Indication: GENERALISED ANXIETY DISORDER
     Dosage: 60MG QHS PO
     Route: 048
     Dates: start: 20090529

REACTIONS (9)
  - AGITATION [None]
  - COLD SWEAT [None]
  - DEREALISATION [None]
  - DIZZINESS [None]
  - FEELING ABNORMAL [None]
  - HEADACHE [None]
  - HEART RATE INCREASED [None]
  - IRRITABILITY [None]
  - NAUSEA [None]
